FAERS Safety Report 5759842-2 (Version None)
Quarter: 2008Q2

REPORT INFORMATION
  Report Type: 
  Country: None (occurrence: None)
  Receive Date: 20080605
  Receipt Date: 20080528
  Transmission Date: 20081010
  Serious: Yes (Hospitalization, Other)
  Sender: FDA-Public Use
  Company Number: PHHY2008CA08750

PATIENT
  Sex: Female

DRUGS (10)
  1. ZOLEDRONIC ACID [Suspect]
     Indication: OSTEOPOROSIS
     Dosage: 5 MG
     Dates: start: 20080515
  2. CELEBREX [Concomitant]
  3. PREDNISONE TAB [Concomitant]
  4. CRESTOR [Concomitant]
  5. RAMIPRIL [Concomitant]
  6. NORVASC [Concomitant]
  7. NEXIUM [Concomitant]
  8. CALCIUM [Concomitant]
  9. VITAMIN D [Concomitant]
     Dosage: UNK
  10. PLAQUENIL [Concomitant]
     Dosage: UNK

REACTIONS (6)
  - CHEST PAIN [None]
  - DIARRHOEA HAEMORRHAGIC [None]
  - GASTRITIS HAEMORRHAGIC [None]
  - OESOPHAGITIS [None]
  - STOMACH DISCOMFORT [None]
  - VOMITING [None]
